FAERS Safety Report 10283309 (Version 2)
Quarter: 2014Q4

REPORT INFORMATION
  Report Type: Spontaneous
  Country: US (occurrence: US)
  Receive Date: 20140708
  Receipt Date: 20141211
  Transmission Date: 20150528
  Serious: Yes (Other)
  Sender: FDA-Public Use
  Company Number: US-SA-2014SA087048

PATIENT
  Sex: Male

DRUGS (2)
  1. SOLOSTAR [Concomitant]
     Active Substance: DEVICE
     Indication: DEVICE THERAPY
  2. LANTUS SOLOSTAR [Suspect]
     Active Substance: INSULIN GLARGINE
     Indication: DIABETES MELLITUS
     Dosage: DOSE:38 UNIT(S)
     Route: 065

REACTIONS (7)
  - Diabetic neuropathy [Unknown]
  - Blood glucose increased [Unknown]
  - Renal failure [Unknown]
  - Learning disability [Unknown]
  - Seizure [Unknown]
  - Migraine [Unknown]
  - Headache [Unknown]
